FAERS Safety Report 13306815 (Version 1)
Quarter: 2017Q1

REPORT INFORMATION
  Report Type: Spontaneous
  Country: US (occurrence: US)
  Receive Date: 20170308
  Receipt Date: 20170308
  Transmission Date: 20170428
  Serious: No
  Sender: FDA-Public Use
  Company Number: US-AKORN PHARMACEUTICALS-2016AKN00092

PATIENT
  Sex: Female

DRUGS (5)
  1. CLARAVIS [Suspect]
     Active Substance: ISOTRETINOIN
     Dosage: UNK MG, UNK
     Route: 048
     Dates: start: 20151209, end: 20160105
  2. CLARAVIS [Suspect]
     Active Substance: ISOTRETINOIN
     Dosage: UNK MG, UNK
     Route: 048
     Dates: start: 20150928, end: 20151102
  3. MYORISAN [Suspect]
     Active Substance: ISOTRETINOIN
     Dosage: UNK MG, UNK
     Route: 048
     Dates: start: 20150722, end: 20150827
  4. MYORISAN [Suspect]
     Active Substance: ISOTRETINOIN
     Dosage: UNK MG, UNK
     Route: 048
     Dates: start: 20151103, end: 20151208
  5. MYORISAN [Suspect]
     Active Substance: ISOTRETINOIN
     Dosage: UNK MG, UNK
     Route: 048
     Dates: start: 20160106

REACTIONS (1)
  - Pain in extremity [Unknown]
